FAERS Safety Report 10391136 (Version 1)
Quarter: 2014Q3

REPORT INFORMATION
  Report Type: Report from Study
  Country: FR (occurrence: FR)
  Receive Date: 20140818
  Receipt Date: 20140818
  Transmission Date: 20150326
  Serious: Yes (Other)
  Sender: FDA-Public Use
  Company Number: FR-BRISTOL-MYERS SQUIBB COMPANY-21286570

PATIENT
  Age: 75 Year
  Sex: Female
  Weight: 60 kg

DRUGS (1)
  1. SPRYCEL [Suspect]
     Active Substance: DASATINIB
     Indication: CHRONIC MYELOID LEUKAEMIA
     Route: 048
     Dates: start: 20110822, end: 20130923

REACTIONS (1)
  - Vasculitis necrotising [Recovered/Resolved]

NARRATIVE: CASE EVENT DATE: 201307
